FAERS Safety Report 8462665-7 (Version None)
Quarter: 2012Q2

REPORT INFORMATION
  Report Type: 
  Country: None (occurrence: None)
  Receive Date: 20120625
  Receipt Date: 20120612
  Transmission Date: 20120825
  Serious: No
  Sender: FDA-Public Use
  Company Number: US-ASTRAZENECA-2012SE39219

PATIENT
  Age: 90 Year
  Sex: Male
  Weight: 83.9 kg

DRUGS (3)
  1. AGGRENOX [Concomitant]
  2. NEXIUM [Suspect]
     Indication: GASTROOESOPHAGEAL REFLUX DISEASE
     Route: 048
  3. LISINOPRIL [Suspect]
     Indication: BLOOD PRESSURE
     Route: 048

REACTIONS (3)
  - DRUG DOSE OMISSION [None]
  - APHAGIA [None]
  - CHOKING [None]
